FAERS Safety Report 22852989 (Version 3)
Quarter: 2023Q4

REPORT INFORMATION
  Report Type: Spontaneous
  Country: JP (occurrence: JP)
  Receive Date: 20230823
  Receipt Date: 20231002
  Transmission Date: 20240110
  Serious: Yes (Hospitalization)
  Sender: FDA-Public Use
  Company Number: JP-002147023-NVSJ2023JP012534

PATIENT
  Age: 56 Year
  Sex: Male

DRUGS (5)
  1. NEORAL [Suspect]
     Active Substance: CYCLOSPORINE
     Indication: Psoriasis
     Dosage: 250 MG
     Route: 048
     Dates: start: 200507, end: 200510
  2. NEORAL [Suspect]
     Active Substance: CYCLOSPORINE
     Indication: Pustular psoriasis
     Dosage: 125 MG
     Route: 048
     Dates: start: 200510, end: 201007
  3. NEORAL [Suspect]
     Active Substance: CYCLOSPORINE
     Dosage: 50 MG
     Route: 048
     Dates: start: 201007, end: 20171115
  4. TIGASON [Concomitant]
     Indication: Psoriasis
     Dosage: 30 MG
     Route: 065
     Dates: start: 200404, end: 200507
  5. CLOBETASOL PROPIONATE [Concomitant]
     Active Substance: CLOBETASOL PROPIONATE
     Indication: Pustular psoriasis
     Dosage: 6 G, QD
     Route: 061

REACTIONS (1)
  - Osteonecrosis [Recovered/Resolved]

NARRATIVE: CASE EVENT DATE: 20070701
